FAERS Safety Report 19517459 (Version 1)
Quarter: 2021Q3

REPORT INFORMATION
  Report Type: Spontaneous
  Country: US (occurrence: US)
  Receive Date: 20210712
  Receipt Date: 20210712
  Transmission Date: 20211014
  Serious: No
  Sender: FDA-Public Use
  Company Number: US-CIPLA LTD.-2021US04474

PATIENT

DRUGS (8)
  1. ATAZANAVIR. [Suspect]
     Active Substance: ATAZANAVIR
     Indication: ANTIRETROVIRAL THERAPY
     Dosage: AT A TOTAL DOSE OF 300 FROM 10 TO 29 WEEKS OF GESTATION
     Route: 048
  2. RITONAVIR. [Suspect]
     Active Substance: RITONAVIR
     Indication: ANTIRETROVIRAL THERAPY
     Dosage: AT A TOTAL DOSE OF 1 FROM 10 WEEK, 1ST TRIMESTER
     Route: 048
  3. ZIDOVUDINE. [Suspect]
     Active Substance: ZIDOVUDINE
     Indication: ANTIRETROVIRAL THERAPY
     Dosage: AT A TOTAL DOSE OF 2 FROM 40 WEEKS
     Route: 042
  4. ATAZANAVIR. [Suspect]
     Active Substance: ATAZANAVIR
     Dosage: AT A TOTAL DOSE OF 400 IN 3RD TRIMESTER FROM 29 WEEKS OF GESTATION
     Route: 048
  5. ZIDOVUDINE. [Suspect]
     Active Substance: ZIDOVUDINE
     Dosage: AT A TOTAL DOSE OF 1 FROM 40 WEEKS, 3RD TRIMESTER
     Route: 042
  6. EMTRICITABINE/TENOFOVIR [Suspect]
     Active Substance: EMTRICITABINE\TENOFOVIR
     Indication: ANTIRETROVIRAL THERAPY
     Dosage: EMTRICITABINE/TENOFOVIR DISOPROXIL FUMERATE? TOTAL DOSAGE OF 1 IN THE 1ST TRIMESTER FROM WEEK 10
     Route: 048
  7. EMTRICITABINE;TENOFOVIR ALAFENAMIDE [Suspect]
     Active Substance: EMTRICITABINE\TENOFOVIR
     Indication: ANTIRETROVIRAL THERAPY
     Dosage: AT A TOTAL DOSAGE OF 1 IN THE FIRST TRIMESTER
     Route: 048
  8. RALTEGRAVIR. [Suspect]
     Active Substance: RALTEGRAVIR
     Indication: ANTIRETROVIRAL THERAPY
     Dosage: AT A TOTAL DOSE OF 1 FROM 0 TO 10 WEEKS
     Route: 048

REACTIONS (2)
  - Exposure during pregnancy [Unknown]
  - No adverse event [Unknown]
